FAERS Safety Report 5512345-2 (Version None)
Quarter: 2007Q4

REPORT INFORMATION
  Report Type: 
  Country: None (occurrence: None)
  Receive Date: 20071107
  Receipt Date: 20071022
  Transmission Date: 20080405
  Serious: Yes (Hospitalization)
  Sender: FDA-Public Use
  Company Number: 2007BM000149

PATIENT
  Age: 40 Year
  Sex: Female

DRUGS (4)
  1. PREDNISONE [Suspect]
     Indication: GLOMERULONEPHRITIS RAPIDLY PROGRESSIVE
     Dosage: 50 MG QD
  2. ORAPRED [Suspect]
  3. METHYLPREDNISOLONE [Concomitant]
  4. CYCLOPHOSPHAMIDE [Concomitant]

REACTIONS (8)
  - CATHETER RELATED INFECTION [None]
  - COMPLICATIONS OF TRANSPLANT SURGERY [None]
  - KLEBSIELLA INFECTION [None]
  - MALNUTRITION [None]
  - NO THERAPEUTIC RESPONSE [None]
  - PNEUMONIA [None]
  - RENAL TRANSPLANT [None]
  - STRONGYLOIDIASIS [None]
